FAERS Safety Report 16257712 (Version 2)
Quarter: 2019Q2

REPORT INFORMATION
  Report Type: Spontaneous
  Country: CH (occurrence: CH)
  Receive Date: 20190430
  Receipt Date: 20190528
  Transmission Date: 20190711
  Serious: Yes (Other)
  Sender: FDA-Public Use
  Company Number: CH-JNJFOC-20190444081

PATIENT
  Sex: Male

DRUGS (1)
  1. XARELTO [Suspect]
     Active Substance: RIVAROXABAN
     Indication: THROMBOSIS
     Route: 048
     Dates: start: 20190330

REACTIONS (3)
  - Haemorrhagic cyst [Unknown]
  - Chromaturia [Unknown]
  - Bladder cyst [Unknown]

NARRATIVE: CASE EVENT DATE: 2019
